FAERS Safety Report 24458409 (Version 1)
Quarter: 2024Q4

REPORT INFORMATION
  Report Type: Report from Study
  Country: US (occurrence: US)
  Receive Date: 20241018
  Receipt Date: 20241018
  Transmission Date: 20250115
  Serious: No
  Sender: ROCHE
  Company Number: US-ROCHE-3517305

PATIENT

DRUGS (1)
  1. RITUXIMAB [Suspect]
     Active Substance: RITUXIMAB
     Indication: Central nervous system lymphoma
     Route: 037

REACTIONS (4)
  - Off label use [Unknown]
  - Throat tightness [Recovered/Resolved]
  - Flushing [Recovered/Resolved]
  - Hypoaesthesia [Recovered/Resolved]
